FAERS Safety Report 4300693-3 (Version None)
Quarter: 2004Q1

REPORT INFORMATION
  Report Type: 
  Country: None (occurrence: None)
  Receive Date: 20040209
  Receipt Date: 20040126
  Transmission Date: 20041129
  Serious: Yes (Hospitalization)
  Sender: FDA-Public Use
  Company Number: 2004SA000009

PATIENT
  Age: 30 Year
  Sex: Male
  Weight: 77 kg

DRUGS (12)
  1. THYMOGLOBULIN [Suspect]
     Indication: PROPHYLAXIS AGAINST TRANSPLANT REJECTION
  2. MEDROL [Concomitant]
  3. CELLCEPT [Concomitant]
  4. PROGRAF [Concomitant]
  5. DIFLUCAN [Concomitant]
  6. ZOSYN [Concomitant]
  7. BACTRIM [Concomitant]
  8. PANTOPRAZOLE [Concomitant]
  9. ACYCLOVIR [Concomitant]
  10. DEXAMETHASONE [Concomitant]
  11. BENADRYL [Concomitant]
  12. ACETAMINOPHEN [Concomitant]

REACTIONS (7)
  - GASTROINTESTINAL HAEMORRHAGE [None]
  - HEPATIC HAEMORRHAGE [None]
  - INFECTION [None]
  - LIVER TRANSPLANT REJECTION [None]
  - LUNG INFILTRATION [None]
  - POST PROCEDURAL HAEMORRHAGE [None]
  - PYREXIA [None]
